FAERS Safety Report 21100498 (Version 2)
Quarter: 2023Q2

REPORT INFORMATION
  Report Type: Report from Study
  Country: US (occurrence: US)
  Receive Date: 20220719
  Receipt Date: 20230417
  Transmission Date: 20230722
  Serious: No
  Sender: FDA-Public Use
  Company Number: US-KYOWAKIRIN-2022BKK011151

PATIENT

DRUGS (2)
  1. MOGAMULIZUMAB [Suspect]
     Active Substance: MOGAMULIZUMAB
     Indication: Product used for unknown indication
     Dosage: UNK
     Route: 042
  2. MOGAMULIZUMAB [Suspect]
     Active Substance: MOGAMULIZUMAB
     Dosage: UNK
     Route: 042
     Dates: start: 20230412

REACTIONS (5)
  - Anal fungal infection [Unknown]
  - Abdominal discomfort [Unknown]
  - Erythema [Unknown]
  - Diarrhoea [Unknown]
  - Fatigue [Unknown]
